FAERS Safety Report 24444246 (Version 2)
Quarter: 2024Q4

REPORT INFORMATION
  Report Type: Report from Study
  Country: US (occurrence: US)
  Receive Date: 20241016
  Receipt Date: 20241017
  Transmission Date: 20250115
  Serious: No
  Sender: ROCHE
  Company Number: US-ROCHE-2736677

PATIENT
  Age: 51 Year
  Sex: Male
  Weight: 99.3 kg

DRUGS (2)
  1. RITUXAN [Suspect]
     Active Substance: RITUXIMAB
     Indication: Polymyositis
     Dosage: DATE OF SERVICE: 02/JUL/2021
     Route: 042
  2. RITUXAN [Suspect]
     Active Substance: RITUXIMAB
     Indication: Interstitial lung disease

REACTIONS (2)
  - Off label use [Unknown]
  - No adverse event [Unknown]
